FAERS Safety Report 7225649-2 (Version None)
Quarter: 2011Q1

REPORT INFORMATION
  Report Type: 
  Country: None (occurrence: None)
  Receive Date: 20110113
  Receipt Date: 20110107
  Transmission Date: 20110831
  Serious: Yes (Life-Threatening)
  Sender: FDA-Public Use
  Company Number: JP-BAXTER-2011BH000703

PATIENT
  Age: 61 Year
  Sex: Female

DRUGS (3)
  1. CYCLOPHOSPHAMIDE [Suspect]
     Indication: BREAST CANCER
     Route: 041
     Dates: start: 20100316, end: 20100316
  2. FLUOROURACIL GENERIC [Suspect]
     Indication: BREAST CANCER
     Route: 041
     Dates: start: 20100316, end: 20100316
  3. EPIRUBICIN HYDROCHLORIDE [Suspect]
     Indication: BREAST CANCER
     Route: 041
     Dates: start: 20100316, end: 20100316

REACTIONS (2)
  - PULMONARY OEDEMA [None]
  - HYPONATRAEMIA [None]
